FAERS Safety Report 7559860-8 (Version None)
Quarter: 2011Q2

REPORT INFORMATION
  Report Type: 
  Country: None (occurrence: None)
  Receive Date: 20110617
  Receipt Date: 20110617
  Transmission Date: 20111010
  Serious: No
  Sender: FDA-Public Use
  Company Number: None

PATIENT
  Age: 49 Year
  Sex: Male
  Weight: 90.7194 kg

DRUGS (1)
  1. AVELOX [Suspect]
     Indication: INFECTION
     Dosage: 400 MG 1 PER DAY PO
     Route: 048
     Dates: start: 20100525, end: 20100527

REACTIONS (3)
  - INSOMNIA [None]
  - TENDON PAIN [None]
  - PAIN IN EXTREMITY [None]
